FAERS Safety Report 13575789 (Version 2)
Quarter: 2017Q2

REPORT INFORMATION
  Report Type: Spontaneous
  Country: JP (occurrence: JP)
  Receive Date: 20170524
  Receipt Date: 20170526
  Transmission Date: 20170830
  Serious: No
  Sender: FDA-Public Use
  Company Number: JP-AMGEN-JPNSP2017076636

PATIENT
  Age: 79 Year
  Sex: Female

DRUGS (6)
  1. PIMENOL [Concomitant]
     Active Substance: PIRMENOL HYDROCHLORIDE
     Dosage: UNK
  2. LIPITOR [Concomitant]
     Active Substance: ATORVASTATIN CALCIUM
     Dosage: 20 MG, QD
  3. ARTIST [Concomitant]
     Active Substance: CARVEDILOL
     Dosage: UNK
  4. ELIQUIS [Concomitant]
     Active Substance: APIXABAN
     Dosage: UNK
  5. REPATHA [Suspect]
     Active Substance: EVOLOCUMAB
     Indication: TYPE IIA HYPERLIPIDAEMIA
     Dosage: UNK
     Route: 058
  6. BAYASPIRIN [Concomitant]
     Active Substance: ASPIRIN
     Dosage: UNK

REACTIONS (5)
  - Weight decreased [Unknown]
  - Abdominal pain [Unknown]
  - Abdominal distension [Unknown]
  - Asthenia [Unknown]
  - Muscular weakness [Unknown]
